FAERS Safety Report 12666903 (Version 1)
Quarter: 2016Q3

REPORT INFORMATION
  Report Type: Spontaneous
  Country: US (occurrence: None)
  Receive Date: 20160818
  Receipt Date: 20160818
  Transmission Date: 20161109
  Serious: No
  Sender: FDA-Public Use
  Company Number: None

PATIENT
  Age: 61 Year
  Sex: Female
  Weight: 93.9 kg

DRUGS (5)
  1. TAPAZOLE [Concomitant]
     Active Substance: METHIMAZOLE
  2. DESMOPRESSIN [Concomitant]
     Active Substance: DESMOPRESSIN
  3. CHOLESTYRAMINE. [Concomitant]
     Active Substance: CHOLESTYRAMINE
  4. VITAMIN B12 [Concomitant]
     Active Substance: CYANOCOBALAMIN
  5. METHIMAZOLE. [Suspect]
     Active Substance: METHIMAZOLE

REACTIONS (2)
  - Rash [None]
  - Product substitution issue [None]
